FAERS Safety Report 7509552-6 (Version None)
Quarter: 2011Q2

REPORT INFORMATION
  Report Type: 
  Country: None (occurrence: None)
  Receive Date: 20110527
  Receipt Date: 20110523
  Transmission Date: 20111010
  Serious: Yes (Hospitalization, Congenital Anomaly, Other)
  Sender: FDA-Public Use
  Company Number: US-PFIZER INC-2010092573

PATIENT
  Sex: Male
  Weight: 2.5 kg

DRUGS (11)
  1. AMOXICILLIN [Concomitant]
     Indication: TONSILLECTOMY
     Dosage: UNK
     Route: 064
     Dates: start: 20020228
  2. ZOLOFT [Suspect]
     Indication: HYPOCHONDRIASIS
     Dosage: 100 MG, 1X/DAY
     Route: 064
     Dates: start: 20001212
  3. VICODIN [Concomitant]
     Indication: TONSILLECTOMY
     Dosage: 5/500
     Route: 064
     Dates: start: 20020227
  4. CEPHALEXIN [Concomitant]
     Dosage: 500, THRICE DAILY
     Dates: start: 20021022
  5. ZOLOFT [Suspect]
     Indication: ANXIETY DISORDER
     Dosage: 50 MG, 1X/DAY
     Route: 064
     Dates: start: 20001211
  6. BACTRIM DS [Concomitant]
     Dosage: UNK
     Route: 064
     Dates: start: 20020228
  7. ZOLOFT [Suspect]
     Indication: PELVIC PAIN
     Dosage: 150 MG, DAILY
     Route: 064
     Dates: start: 20010118
  8. METROGEL [Concomitant]
     Dosage: UNK
     Route: 064
     Dates: start: 20020705
  9. ZOLOFT [Suspect]
     Indication: POSTPARTUM DEPRESSION
     Dosage: UNK
     Route: 064
     Dates: start: 20010416
  10. ACETAMINOPHEN [Concomitant]
     Indication: DISCOMFORT
     Dosage: UNK
     Route: 064
     Dates: start: 20020705
  11. PRENATAL VITAMINS [Concomitant]
     Dosage: UNK
     Route: 064

REACTIONS (25)
  - VELOPHARYNGEAL INCOMPETENCE [None]
  - TESTICULAR RETRACTION [None]
  - HYPOVOLAEMIA [None]
  - RESPIRATORY DISTRESS [None]
  - DRUG EXPOSURE DURING PREGNANCY [None]
  - CLEFT LIP AND PALATE [None]
  - CHRONIC SINUSITIS [None]
  - INGUINAL HERNIA [None]
  - BRONCHOPNEUMONIA [None]
  - UPPER RESPIRATORY TRACT INFECTION [None]
  - PHARYNGITIS [None]
  - EUSTACHIAN TUBE DYSFUNCTION [None]
  - SLEEP APNOEA SYNDROME [None]
  - OTITIS MEDIA [None]
  - ATELECTASIS NEONATAL [None]
  - DEVELOPMENTAL DELAY [None]
  - DEAFNESS [None]
  - CARDIOMEGALY [None]
  - TACHYPNOEA [None]
  - CRYPTORCHISM [None]
  - URETHRAL MEATUS STENOSIS [None]
  - SPEECH DISORDER [None]
  - ASTHMA [None]
  - ENURESIS [None]
  - SKIN PAPILLOMA [None]
